FAERS Safety Report 7076954-4 (Version None)
Quarter: 2010Q4

REPORT INFORMATION
  Report Type: 
  Country: None (occurrence: None)
  Receive Date: 20101101
  Receipt Date: 20101021
  Transmission Date: 20110411
  Serious: Yes (Hospitalization)
  Sender: FDA-Public Use
  Company Number: BR-ASTRAZENECA-2010SE35431

PATIENT
  Age: 66 Year
  Sex: Female
  Weight: 80 kg

DRUGS (2)
  1. ATACAND HCT [Suspect]
     Indication: HYPERTENSION
     Dosage: 16/12.5 MG, HALF TABLET DAILY
     Route: 048
     Dates: start: 20060101
  2. CRESTOR [Suspect]
     Indication: HYPERCHOLESTEROLAEMIA
     Route: 048
     Dates: start: 20080101, end: 20080101

REACTIONS (5)
  - ABDOMINAL PAIN UPPER [None]
  - DRUG DOSE OMISSION [None]
  - HYPERCHOLESTEROLAEMIA [None]
  - PERIPHERAL ISCHAEMIA [None]
  - WOUND [None]
